FAERS Safety Report 9357435 (Version 1)
Quarter: 2013Q2

REPORT INFORMATION
  Report Type: Spontaneous
  Country: US (occurrence: None)
  Receive Date: 20130617
  Receipt Date: 20130617
  Transmission Date: 20140414
  Serious: Yes (Death)
  Sender: FDA-Public Use
  Company Number: 7216050

PATIENT
  Age: 70 Year
  Sex: Female

DRUGS (13)
  1. LEVOTHYROXINE (LEVOTHYROXINE) [Suspect]
     Indication: PRODUCT USED FOR UNKNOWN INDICATION
  2. DOXORUBCIN (DOXORUBICIN) [Concomitant]
  3. CYCLOPHOSPHAMIDE (CYCLOPHOSPHAMIDE) [Concomitant]
  4. PACLITAXEL (PACLITAXEL) [Concomitant]
  5. TAMOXIFEN [Concomitant]
  6. ANASTROZOLE (ANASTROZOLE) [Concomitant]
  7. RISEDRONATE SODIUM (RISEDRONATE SODIUM) [Concomitant]
  8. ATORVASTATIN (ATORVASTATIN) [Concomitant]
  9. CALCIUM (CALCIUM) [Concomitant]
  10. GLUCOSAMINE (GLUCOSAMINE) [Concomitant]
  11. CHONDROITIN (CHONDROITIN) [Concomitant]
  12. ASPIRIN/00002701/(ACETYLSALICYLIC ACID) [Concomitant]
  13. BIOTIN (BIOTIN) [Concomitant]

REACTIONS (11)
  - Uterine cancer [None]
  - Vena cava thrombosis [None]
  - Jaundice [None]
  - Hypotension [None]
  - Malignant neoplasm progression [None]
  - Metastases to liver [None]
  - Metastases to spine [None]
  - Metastases to lung [None]
  - Metastases to retroperitoneum [None]
  - Alanine aminotransferase increased [None]
  - No therapeutic response [None]
